FAERS Safety Report 5862898-X (Version None)
Quarter: 2008Q3

REPORT INFORMATION
  Report Type: 
  Country: None (occurrence: None)
  Receive Date: 20080828
  Receipt Date: 20080820
  Transmission Date: 20090109
  Serious: Yes (Other)
  Sender: FDA-Public Use
  Company Number: A0738851A

PATIENT
  Age: 50 Year
  Sex: Female

DRUGS (5)
  1. LAMICTAL [Suspect]
     Indication: BIPOLAR DISORDER
     Dosage: 200MG PER DAY
     Route: 048
     Dates: start: 20080301
  2. LITHIUM CARBONATE [Suspect]
     Indication: DRUG USE FOR UNKNOWN INDICATION
  3. CYTOMEL [Suspect]
     Indication: DRUG USE FOR UNKNOWN INDICATION
  4. LEXAPRO [Concomitant]
  5. ATIVAN [Concomitant]

REACTIONS (8)
  - ANAEMIA [None]
  - HYPERTHYROIDISM [None]
  - INSOMNIA [None]
  - MEMORY IMPAIRMENT [None]
  - PALPITATIONS [None]
  - SPEECH DISORDER [None]
  - THERAPEUTIC AGENT TOXICITY [None]
  - VISION BLURRED [None]
